FAERS Safety Report 7269845-7 (Version None)
Quarter: 2011Q1

REPORT INFORMATION
  Report Type: 
  Country: None (occurrence: None)
  Receive Date: 20110202
  Receipt Date: 20110126
  Transmission Date: 20110831
  Serious: Yes (Hospitalization)
  Sender: FDA-Public Use
  Company Number: BR-US-EMD SERONO, INC.-7035894

PATIENT
  Sex: Female

DRUGS (5)
  1. ENALAPRIL MALEATE [Concomitant]
  2. PROPRANOLOL [Concomitant]
  3. CARBAMAZEPINE [Concomitant]
  4. REBIF [Suspect]
     Indication: RELAPSING-REMITTING MULTIPLE SCLEROSIS
     Dates: start: 20080319
  5. TYLENOL-500 [Concomitant]

REACTIONS (6)
  - VISUAL ACUITY REDUCED [None]
  - MALAISE [None]
  - URINARY TRACT INFECTION [None]
  - DYSSTASIA [None]
  - MONOPLEGIA [None]
  - MUSCULAR WEAKNESS [None]
